FAERS Safety Report 8246964-X (Version None)
Quarter: 2012Q1

REPORT INFORMATION
  Report Type: 
  Country: None (occurrence: None)
  Receive Date: 20120330
  Receipt Date: 20120319
  Transmission Date: 20120608
  Serious: Yes (Other)
  Sender: FDA-Public Use
  Company Number: DE-ROCHE-1032121

PATIENT
  Sex: Female
  Weight: 64.3 kg

DRUGS (8)
  1. PACLITAXEL [Suspect]
     Indication: GASTRIC CANCER
     Route: 042
     Dates: start: 20110505, end: 20110819
  2. CALCIUM/VITAMIN D [Concomitant]
  3. IBANDRONATE SODIUM [Suspect]
     Indication: BONE MARROW OEDEMA
     Route: 042
     Dates: start: 20111101, end: 20120101
  4. NEURO-RATIOPHARM [Concomitant]
  5. L-THYROXIN 100 [Concomitant]
     Indication: HYPERTHYROIDISM
     Route: 048
  6. METOPROLOL TARTRATE [Concomitant]
  7. TRASTUZUMAB [Concomitant]
     Indication: GASTRIC CANCER
     Route: 042
     Dates: start: 20110502
  8. PANTOPRAZOLE [Concomitant]
     Indication: PROPHYLAXIS
     Route: 048

REACTIONS (4)
  - MUSCULAR WEAKNESS [None]
  - HYPOAESTHESIA [None]
  - PARAESTHESIA [None]
  - PAIN IN EXTREMITY [None]
